FAERS Safety Report 18232079 (Version 1)
Quarter: 2020Q3

REPORT INFORMATION
  Report Type: Spontaneous
  Country: US (occurrence: US)
  Receive Date: 20200903
  Receipt Date: 20200903
  Transmission Date: 20201103
  Serious: Yes (Hospitalization)
  Sender: FDA-Public Use
  Company Number: None

PATIENT
  Age: 53 Year
  Sex: Female

DRUGS (1)
  1. OTEZLA [Suspect]
     Active Substance: APREMILAST
     Indication: PSORIASIS
     Route: 048
     Dates: start: 202008, end: 202008

REACTIONS (4)
  - Nausea [None]
  - Headache [None]
  - Myalgia [None]
  - Vision blurred [None]

NARRATIVE: CASE EVENT DATE: 202008
